FAERS Safety Report 10047792 (Version 1)
Quarter: 2014Q1

REPORT INFORMATION
  Report Type: Spontaneous
  Country: US (occurrence: None)
  Receive Date: 20140306
  Receipt Date: 20140306
  Transmission Date: 20141002
  Serious: Yes (Other)
  Sender: FDA-Public Use
  Company Number: 163-21880-13070902

PATIENT
  Age: 68 Year
  Sex: Female
  Weight: 68.04 kg

DRUGS (3)
  1. REVLIMID [Suspect]
     Indication: MYELODYSPLASTIC SYNDROME
     Dosage: 5MG, 1 IN 1 D, PO
     Route: 048
     Dates: start: 20130603
  2. RED BLOOD CELLS (RED BLOOD CELLS) (INJECTION FOR INFUSION) [Concomitant]
  3. PLATELETS (PLATELETS) (INJECTION FOR INFUSION) [Concomitant]

REACTIONS (3)
  - Haemoglobin decreased [None]
  - Platelet count decreased [None]
  - Oedema peripheral [None]
